FAERS Safety Report 8256513-8 (Version None)
Quarter: 2012Q1

REPORT INFORMATION
  Report Type: 
  Country: None (occurrence: None)
  Receive Date: 20120330
  Receipt Date: 20120322
  Transmission Date: 20120608
  Serious: Yes (Other)
  Sender: FDA-Public Use
  Company Number: 2012SP015726

PATIENT
  Age: 55 Year
  Sex: Female

DRUGS (11)
  1. ROCURONIUM BROMIDE [Suspect]
     Indication: NEUROMUSCULAR BLOCKADE
     Dosage: 0.6 MG/KG
     Dates: start: 20120126, end: 20120126
  2. FENTANYL [Concomitant]
  3. MIDAZOLAM [Concomitant]
  4. ACETAMINOPHEN [Concomitant]
  5. PROPOFOL [Concomitant]
  6. CEFUROXIME [Concomitant]
  7. DEXAMETHASONE [Concomitant]
  8. MORPHINE [Concomitant]
  9. ONDONSETRON [Concomitant]
  10. SEVOFLURANE [Concomitant]
  11. GLYCOPYRROLATE [Concomitant]

REACTIONS (3)
  - ENDOTRACHEAL INTUBATION COMPLICATION [None]
  - THERAPEUTIC PRODUCT INEFFECTIVE [None]
  - COUGH [None]
